FAERS Safety Report 7334609-2 (Version None)
Quarter: 2011Q1

REPORT INFORMATION
  Report Type: 
  Country: None (occurrence: None)
  Receive Date: 20110307
  Receipt Date: 20110224
  Transmission Date: 20110831
  Serious: Yes (Hospitalization)
  Sender: FDA-Public Use
  Company Number: US-ELI_LILLY_AND_COMPANY-US201102007302

PATIENT
  Sex: Female

DRUGS (3)
  1. HUMALOG MIX 75/25 [Suspect]
     Dosage: 50 U, EACH EVENING
     Dates: start: 20100101
  2. HUMALOG MIX 75/25 [Suspect]
     Indication: DIABETES MELLITUS
     Dosage: 30 U, EACH MORNING
     Dates: start: 20100101
  3. HUMALOG MIX 75/25 [Suspect]
     Dosage: 30 U, OTHER
     Dates: start: 20100101

REACTIONS (5)
  - ASTHENIA [None]
  - ARTHRITIS [None]
  - VISUAL ACUITY REDUCED [None]
  - BLOOD GLUCOSE INCREASED [None]
  - DYSPNOEA [None]
